FAERS Safety Report 18587786 (Version 2)
Quarter: 2021Q2

REPORT INFORMATION
  Report Type: Other
  Country: FR (occurrence: FR)
  Receive Date: 20201207
  Receipt Date: 20210618
  Transmission Date: 20210717
  Serious: Yes (Death, Other)
  Sender: FDA-Public Use
  Company Number: FR-ROCHE-2724075

PATIENT

DRUGS (6)
  1. CICLOSPORIN [Suspect]
     Active Substance: CYCLOSPORINE
     Indication: PROPHYLAXIS AGAINST TRANSPLANT REJECTION
     Route: 065
  2. MYCOPHENOLATE MOFETIL. [Suspect]
     Active Substance: MYCOPHENOLATE MOFETIL
     Indication: PROPHYLAXIS AGAINST TRANSPLANT REJECTION
     Route: 065
  3. ANTITHYMOCYTE IMMUNOGLOBULIN [Suspect]
     Active Substance: THYMOCYTE IMMUNE GLOBULIN NOS
     Indication: PROPHYLAXIS AGAINST TRANSPLANT REJECTION
     Route: 065
  4. AZATHIOPRINE. [Suspect]
     Active Substance: AZATHIOPRINE
     Indication: PROPHYLAXIS AGAINST TRANSPLANT REJECTION
     Route: 065
  5. TACROLIMUS. [Suspect]
     Active Substance: TACROLIMUS
     Indication: PROPHYLAXIS AGAINST TRANSPLANT REJECTION
     Route: 065
  6. RITUXIMAB. [Suspect]
     Active Substance: RITUXIMAB
     Indication: PROPHYLAXIS AGAINST TRANSPLANT REJECTION
     Route: 041

REACTIONS (17)
  - Off label use [Unknown]
  - Cytomegalovirus infection [Unknown]
  - Skin cancer [Unknown]
  - Breast cancer [Unknown]
  - Gastrointestinal carcinoma [Unknown]
  - Ear neoplasm malignant [Unknown]
  - Ovarian cancer [Unknown]
  - Neoplasm malignant [Fatal]
  - Squamous cell carcinoma [Unknown]
  - Basal cell carcinoma [Unknown]
  - Malignant urinary tract neoplasm [Unknown]
  - Prostate cancer [Unknown]
  - Post transplant lymphoproliferative disorder [Unknown]
  - Neoplasm malignant [Unknown]
  - Throat cancer [Unknown]
  - Infection [Unknown]
  - Bile duct cancer [Unknown]
